FAERS Safety Report 7981306-6 (Version None)
Quarter: 2011Q4

REPORT INFORMATION
  Report Type: 
  Country: None (occurrence: None)
  Receive Date: 20111213
  Receipt Date: 20111207
  Transmission Date: 20120403
  Serious: Yes (Other)
  Sender: FDA-Public Use
  Company Number: AUR-APL-2011-06074

PATIENT
  Age: 61 Year
  Sex: Male

DRUGS (5)
  1. LOSARTAN POTASSIUM [Concomitant]
  2. ASPIRIN [Concomitant]
  3. SIMVASTATIN [Suspect]
     Indication: HYPERTENSION
     Dosage: (1 DOSAGE. FORMS),ORAL
     Route: 048
  4. ROSUVASTATIN [Suspect]
     Indication: PRODUCT USED FOR UNKNOWN INDICATION
     Dosage: ORAL
     Route: 048
  5. VERAPAMIL [Concomitant]

REACTIONS (3)
  - BURSITIS [None]
  - MORTON'S NEURALGIA [None]
  - MUSCULAR WEAKNESS [None]
